FAERS Safety Report 10964824 (Version 1)
Quarter: 2015Q1

REPORT INFORMATION
  Report Type: Spontaneous
  Country: FR (occurrence: FR)
  Receive Date: 20150330
  Receipt Date: 20150330
  Transmission Date: 20150721
  Serious: Yes (Other)
  Sender: FDA-Public Use
  Company Number: FR-AMGEN-FRASP2015028381

PATIENT
  Age: 35 Year
  Sex: Male

DRUGS (7)
  1. ARANESP [Suspect]
     Active Substance: DARBEPOETIN ALFA
     Indication: CHRONIC KIDNEY DISEASE
  2. ELSEP [Concomitant]
  3. TAHOR [Concomitant]
     Active Substance: ATORVASTATIN CALCIUM
  4. ARANESP [Suspect]
     Active Substance: DARBEPOETIN ALFA
     Indication: ANAEMIA
     Dosage: 40 MUG, Q2WK
     Route: 065
  5. ADVAGRAF [Concomitant]
     Active Substance: TACROLIMUS
  6. ALLOPURINOL. [Concomitant]
     Active Substance: ALLOPURINOL
  7. CORTISONE [Concomitant]
     Active Substance: CORTISONE\HYDROCORTISONE

REACTIONS (3)
  - Injection site haematoma [Unknown]
  - Injection site pain [Unknown]
  - Renal transplant [Unknown]
